FAERS Safety Report 7312682-5 (Version None)
Quarter: 2011Q1

REPORT INFORMATION
  Report Type: 
  Country: None (occurrence: None)
  Receive Date: 20110224
  Receipt Date: 20110103
  Transmission Date: 20110831
  Serious: No
  Sender: FDA-Public Use
  Company Number: US-ASTRAZENECA-2010SE55697

PATIENT
  Age: 64 Year
  Sex: Female
  Weight: 50.8 kg

DRUGS (6)
  1. PHENOBARBITAL TAB [Concomitant]
  2. VIMOVO [Suspect]
     Indication: ARTHRITIS
     Route: 048
     Dates: start: 20101116, end: 20101118
  3. VIMOVO [Suspect]
     Indication: MIGRAINE
     Route: 048
     Dates: start: 20101116, end: 20101118
  4. VIMOVO [Suspect]
     Indication: BONE DISORDER
     Route: 048
     Dates: start: 20101116, end: 20101118
  5. DILANTIN [Concomitant]
  6. CHOLESTEROL LOWERING MED OF UNKNOWN NAME [Concomitant]

REACTIONS (9)
  - JOINT INJURY [None]
  - NAUSEA [None]
  - VOMITING [None]
  - CARDIAC FLUTTER [None]
  - OESOPHAGEAL DISORDER [None]
  - FALL [None]
  - PAIN [None]
  - ASTHENIA [None]
  - APHAGIA [None]
